FAERS Safety Report 8859416 (Version 1)
Quarter: 2012Q4

REPORT INFORMATION
  Report Type: 
  Country: US (occurrence: US)
  Receive Date: 20121024
  Receipt Date: 20121024
  Transmission Date: 20130627
  Serious: Yes (Hospitalization)
  Sender: FDA-Public Use
  Company Number: US-ASTRAZENECA-2012SE23043

PATIENT
  Age: 90 Year
  Sex: Female

DRUGS (15)
  1. TOPROL XL [Suspect]
     Route: 048
  2. ALBUTEROL SULFATE [Concomitant]
     Indication: DYSPNOEA
     Dosage: 2 PUFFS USING INHALER FOUR TIMES A DAY AS NEEDED
     Route: 055
  3. ALBUTEROL SULFATE [Concomitant]
     Indication: WHEEZING
     Dosage: 2 PUFFS USING INHALER FOUR TIMES A DAY AS NEEDED
     Route: 055
  4. ASPIRIN [Concomitant]
     Route: 048
  5. COLACE [Concomitant]
     Dosage: ONE CAPSULE, TWICE DAILY, WITH A GLASS OF WATER
     Route: 048
  6. COREG [Concomitant]
     Route: 048
  7. COREG [Concomitant]
     Route: 048
  8. CRESTOR [Concomitant]
     Route: 048
  9. DIGOXIN [Concomitant]
     Route: 065
  10. FUROSEMIDE [Concomitant]
     Route: 048
  11. HYDRALAZINE [Concomitant]
     Route: 048
  12. IMDUR [Concomitant]
     Indication: CARDIAC DISORDER
     Route: 048
  13. MAALOX [Concomitant]
     Route: 048
  14. NEXIUM [Concomitant]
     Indication: GASTRIC DISORDER
     Route: 048
  15. NITROGLYCERIN [Concomitant]
     Indication: PAIN
     Route: 060

REACTIONS (1)
  - Depression [Unknown]
